FAERS Safety Report 17165315 (Version 1)
Quarter: 2019Q4

REPORT INFORMATION
  Report Type: Report from Study
  Country: US (occurrence: US)
  Receive Date: 20191217
  Receipt Date: 20191217
  Transmission Date: 20200122
  Serious: Yes (Hospitalization)
  Sender: FDA-Public Use
  Company Number: US-EISAI MEDICAL RESEARCH-EC-2019-065120

PATIENT
  Age: 72 Year
  Sex: Male

DRUGS (2)
  1. LENVIMA [Suspect]
     Active Substance: LENVATINIB
     Indication: RENAL CELL CARCINOMA
     Route: 048
     Dates: start: 20191105, end: 201912
  2. AFINITOR [Suspect]
     Active Substance: EVEROLIMUS
     Indication: RENAL CELL CARCINOMA
     Dosage: UNKNOWN FREQUENCY
     Route: 048
     Dates: start: 20191106

REACTIONS (7)
  - Hypertension [Unknown]
  - Vomiting [Unknown]
  - Diarrhoea [Unknown]
  - Nausea [Unknown]
  - Taste disorder [Not Recovered/Not Resolved]
  - Decreased appetite [Unknown]
  - Cyst [Not Recovered/Not Resolved]

NARRATIVE: CASE EVENT DATE: 2019
